FAERS Safety Report 4919789-8 (Version None)
Quarter: 2006Q1

REPORT INFORMATION
  Report Type: 
  Country: None (occurrence: None)
  Receive Date: 20060216
  Receipt Date: 20060126
  Transmission Date: 20060701
  Serious: Yes (Hospitalization, Disabling, Other)
  Sender: FDA-Public Use
  Company Number: CA200601000150

PATIENT
  Age: 74 Year
  Sex: Female

DRUGS (5)
  1. FORTEO [Suspect]
     Indication: OSTEOPOROSIS
     Dosage: 20 ?G , DAILY (1/D)
     Dates: start: 20050521
  2. FORTEO [Concomitant]
  3. PEN, DISPOSABLE [Concomitant]
  4. VERAPAMIL [Concomitant]
  5. LEVOTHYROXINE SODIUM [Concomitant]

REACTIONS (9)
  - BRAIN STEM THROMBOSIS [None]
  - CEREBROVASCULAR ACCIDENT [None]
  - COLITIS [None]
  - COMA [None]
  - FALL [None]
  - HEADACHE [None]
  - INFECTION [None]
  - NAUSEA [None]
  - RECTAL HAEMORRHAGE [None]
